FAERS Safety Report 5087153-X (Version None)
Quarter: 2006Q3

REPORT INFORMATION
  Report Type: 
  Country: None (occurrence: None)
  Receive Date: 20060821
  Receipt Date: 20060804
  Transmission Date: 20061208
  Serious: Yes (Hospitalization)
  Sender: FDA-Public Use
  Company Number: E2090-00061-SPO-JP

PATIENT
  Age: 46 Year
  Sex: Female

DRUGS (4)
  1. ZONISAMIDE [Suspect]
     Indication: CONVULSION PROPHYLAXIS
     Dosage: 400 MG, 2 IN 1 D, ORAL
     Route: 048
     Dates: start: 20031106, end: 20031125
  2. LOXONIN (LOXOPROFEN SODIUM) [Suspect]
     Indication: PAIN
     Dosage: 60 MG, AS NEEDED, AS REQUIRED, ORAL
     Route: 048
     Dates: start: 20031104, end: 20031130
  3. LACTEC [Concomitant]
  4. EVAMYL (LORMETAZEPAM) [Concomitant]

REACTIONS (6)
  - CONJUNCTIVITIS [None]
  - HEPATIC FUNCTION ABNORMAL [None]
  - HYPERSENSITIVITY [None]
  - KERATITIS [None]
  - MUCOSAL INFLAMMATION [None]
  - RASH GENERALISED [None]
